FAERS Safety Report 8845968 (Version 4)
Quarter: 2012Q4

REPORT INFORMATION
  Report Type: Report from Study
  Country: ES (occurrence: ES)
  Receive Date: 20121017
  Receipt Date: 20121031
  Transmission Date: 20130627
  Serious: Yes (Death, Life-Threatening, Hospitalization, Other)
  Sender: FDA-Public Use
  Company Number: ES-GLAXOSMITHKLINE-B0836658A

PATIENT
  Age: 55 Year
  Sex: Male

DRUGS (7)
  1. OFATUMUMAB [Suspect]
     Indication: CHRONIC LYMPHOCYTIC LEUKAEMIA
     Route: 042
     Dates: start: 20120824, end: 20120922
  2. THYMOGLOBULINE [Suspect]
     Indication: CHRONIC LYMPHOCYTIC LEUKAEMIA
     Dates: start: 20120906, end: 20120909
  3. VORICONAZOLE [Concomitant]
     Indication: FUNGAL INFECTION
     Route: 048
     Dates: start: 20120928, end: 20121005
  4. CYCLOSPORIN [Concomitant]
     Indication: PROPHYLAXIS AGAINST GRAFT VERSUS HOST DISEASE
     Route: 042
     Dates: start: 20120911, end: 20121008
  5. MEROPENEM [Concomitant]
     Indication: PYREXIA
     Route: 042
     Dates: start: 20120919
  6. VANCOMYCIN [Concomitant]
     Indication: PYREXIA
     Route: 042
     Dates: start: 20120919, end: 20121008
  7. MYCOPHENOLATE [Concomitant]
     Indication: PYREXIA
     Route: 042
     Dates: start: 20120914

REACTIONS (3)
  - Cholestasis [Recovering/Resolving]
  - Encephalitis viral [Recovered/Resolved]
  - Graft versus host disease [Fatal]
